FAERS Safety Report 5792507-X (Version None)
Quarter: 2008Q2

REPORT INFORMATION
  Report Type: 
  Country: None (occurrence: None)
  Receive Date: 20080626
  Receipt Date: 20080616
  Transmission Date: 20081010
  Serious: Yes (Hospitalization, Other)
  Sender: FDA-Public Use
  Company Number: JP-MERCK-0806USA00171

PATIENT
  Age: 33 Year
  Sex: Male

DRUGS (4)
  1. SINGULAIR [Suspect]
     Indication: RHINITIS ALLERGIC
     Route: 048
     Dates: start: 20080512, end: 20080512
  2. GATIFLOXACIN [Suspect]
     Indication: PHARYNGITIS
     Route: 048
     Dates: start: 20080512, end: 20080512
  3. HUSCODE [Suspect]
     Indication: PHARYNGITIS
     Route: 048
     Dates: start: 20080512, end: 20080512
  4. MUCOSAL [Suspect]
     Indication: ACUTE SINUSITIS
     Route: 048
     Dates: start: 20080512, end: 20080512

REACTIONS (4)
  - ANAPHYLACTIC SHOCK [None]
  - CONJUNCTIVAL HYPERAEMIA [None]
  - ECZEMA [None]
  - MUSCULAR WEAKNESS [None]
